FAERS Safety Report 11377183 (Version 1)
Quarter: 2015Q3

REPORT INFORMATION
  Report Type: Spontaneous
  Country: US (occurrence: US)
  Receive Date: 20150813
  Receipt Date: 20150813
  Transmission Date: 20151125
  Serious: No
  Sender: FDA-Public Use
  Company Number: US-BIOMARINAP-US-2015-107094

PATIENT
  Age: 0 Year
  Sex: Male

DRUGS (1)
  1. NAGLAZYME [Suspect]
     Active Substance: GALSULFASE
     Indication: MUCOPOLYSACCHARIDOSIS
     Dosage: 55 MG, QW
     Route: 042
     Dates: start: 20150403

REACTIONS (2)
  - Abscess [Unknown]
  - Post procedural infection [Unknown]

NARRATIVE: CASE EVENT DATE: 20150518
